FAERS Safety Report 8588846-X (Version None)
Quarter: 2012Q3

REPORT INFORMATION
  Report Type: 
  Country: None (occurrence: None)
  Receive Date: 20120813
  Receipt Date: 20120802
  Transmission Date: 20120928
  Serious: Yes (Other)
  Sender: FDA-Public Use
  Company Number: JP-BRISTOL-MYERS SQUIBB COMPANY-16802787

PATIENT
  Age: 32 Year
  Sex: Male

DRUGS (1)
  1. METFORMIN HCL [Suspect]
     Indication: TYPE 2 DIABETES MELLITUS
     Dosage: REDU:250MG2PER/DAY 19JUL11-18JAN12:750MG:183 DAYS. 19JAN12-09JUN12:500MG:141 DAYS.
     Route: 048
     Dates: start: 20110719, end: 20120609

REACTIONS (1)
  - BLOOD CREATINE PHOSPHOKINASE INCREASED [None]
